FAERS Safety Report 18455799 (Version 5)
Quarter: 2023Q4

REPORT INFORMATION
  Report Type: Other
  Country: JP (occurrence: JP)
  Receive Date: 20201102
  Receipt Date: 20231003
  Transmission Date: 20240109
  Serious: Yes (Death)
  Sender: FDA-Public Use
  Company Number: JP-CHUGAI-A2020047471ROCHE

PATIENT
  Age: 56 Year
  Sex: Female

DRUGS (2)
  1. AVASTIN [Suspect]
     Active Substance: BEVACIZUMAB
     Indication: Breast cancer
     Dosage: DOSAGE IS UNCERTAIN.
     Route: 041
  2. PACLITAXEL [Suspect]
     Active Substance: PACLITAXEL
     Indication: Breast cancer
     Dosage: 67.5 MILLIGRAM/SQ. METER,THREE WEEKS ON ONE WEEK OFF
     Route: 065
     Dates: start: 20180810, end: 20190426

REACTIONS (2)
  - Hepatic failure [Fatal]
  - Pseudocirrhosis [Fatal]

NARRATIVE: CASE EVENT DATE: 20190101
